FAERS Safety Report 16196748 (Version 1)
Quarter: 2019Q2

REPORT INFORMATION
  Report Type: Spontaneous
  Country: JP (occurrence: JP)
  Receive Date: 20190415
  Receipt Date: 20190415
  Transmission Date: 20190711
  Serious: Yes (Hospitalization)
  Sender: FDA-Public Use
  Company Number: JP-ELI_LILLY_AND_COMPANY-JP201902012730

PATIENT
  Age: 60 Year
  Sex: Female

DRUGS (4)
  1. CYRAMZA [Suspect]
     Active Substance: RAMUCIRUMAB
     Indication: COLON CANCER METASTATIC
     Dosage: 600 MG, SINGLE
     Route: 042
     Dates: start: 20190204, end: 20190204
  2. IRINOTECAN [Suspect]
     Active Substance: IRINOTECAN
     Indication: COLON CANCER METASTATIC
     Dosage: UNK UNK, SINGLE
     Route: 042
     Dates: start: 20190204, end: 20190204
  3. FLUOROURACIL. [Suspect]
     Active Substance: FLUOROURACIL
     Indication: COLON CANCER METASTATIC
     Dosage: UNK, CYCLICAL
     Route: 042
     Dates: end: 20190204
  4. LEVOFOLINATE CALCIUM [Concomitant]
     Active Substance: LEVOLEUCOVORIN CALCIUM
     Indication: COLON CANCER METASTATIC
     Dosage: UNK UNK, SINGLE
     Route: 042
     Dates: start: 20190204, end: 20190204

REACTIONS (4)
  - Gastrointestinal oedema [Recovering/Resolving]
  - Intestinal dilatation [Recovering/Resolving]
  - Ascites [Recovering/Resolving]
  - Abdominal pain [Recovering/Resolving]

NARRATIVE: CASE EVENT DATE: 20190214
